FAERS Safety Report 5481101-6 (Version None)
Quarter: 2007Q4

REPORT INFORMATION
  Report Type: 
  Country: None (occurrence: None)
  Receive Date: 20071003
  Receipt Date: 20070808
  Transmission Date: 20080405
  Serious: Yes (Death)
  Sender: FDA-Public Use
  Company Number: E2B_00011027

PATIENT
  Age: 93 Year
  Sex: Female

DRUGS (2)
  1. SOTALOL HYDROCHLORIDE [Suspect]
     Indication: ATRIAL FIBRILLATION
     Dosage: (40 MG, 2 IN 1 D) ORAL
     Route: 048
     Dates: start: 20070713, end: 20070713
  2. AMLODIPINE [Concomitant]

REACTIONS (6)
  - ATRIAL FIBRILLATION [None]
  - ATRIOVENTRICULAR BLOCK COMPLETE [None]
  - CARDIAC FAILURE [None]
  - CARDIAC HYPERTROPHY [None]
  - OEDEMA [None]
  - SINUS TACHYCARDIA [None]
